FAERS Safety Report 24357623 (Version 1)
Quarter: 2024Q3

REPORT INFORMATION
  Report Type: Spontaneous
  Country: US (occurrence: None)
  Receive Date: 20240923
  Receipt Date: 20240923
  Transmission Date: 20241016
  Serious: No
  Sender: Public
  Company Number: None

PATIENT
  Age: 35 Year
  Sex: Male
  Weight: 73.1 kg

DRUGS (1)
  1. TECARTUS [Suspect]
     Active Substance: BREXUCABTAGENE AUTOLEUCEL
     Indication: Burkitt^s lymphoma
     Dosage: 1 DF DOSAGE FORM ONCE INTRAVENOUS
     Route: 042
     Dates: start: 20240808, end: 20240808

REACTIONS (13)
  - Febrile neutropenia [None]
  - Cytokine release syndrome [None]
  - Infection [None]
  - Pilonidal disease [None]
  - Pancytopenia [None]
  - Tachycardia [None]
  - Hypoxia [None]
  - Agitation [None]
  - Hypofibrinogenaemia [None]
  - Immune effector cell-associated neurotoxicity syndrome [None]
  - Haemophagocytic lymphohistiocytosis [None]
  - Pain in extremity [None]
  - Flatulence [None]

NARRATIVE: CASE EVENT DATE: 20240813
